FAERS Safety Report 14396402 (Version 1)
Quarter: 2018Q1

REPORT INFORMATION
  Report Type: Spontaneous
  Country: US (occurrence: US)
  Receive Date: 20180116
  Receipt Date: 20180116
  Transmission Date: 20180509
  Serious: No
  Sender: FDA-Public Use
  Company Number: US-ALLERGAN-1728070US

PATIENT
  Age: 62 Year
  Sex: Female
  Weight: 62.59 kg

DRUGS (1)
  1. BOTOX [Suspect]
     Active Substance: ONABOTULINUMTOXINA
     Indication: TORTICOLLIS
     Dosage: 180 UNITS, SINGLE
     Route: 030
     Dates: start: 20170608, end: 20170608

REACTIONS (9)
  - Pain [Recovering/Resolving]
  - Swollen tongue [Recovering/Resolving]
  - Nausea [Recovering/Resolving]
  - Feeling abnormal [Recovering/Resolving]
  - Paraesthesia oral [Recovering/Resolving]
  - Tinnitus [Recovering/Resolving]
  - Muscular weakness [Recovered/Resolved]
  - Vertigo [Recovered/Resolved]
  - Dysphagia [Recovered/Resolved]

NARRATIVE: CASE EVENT DATE: 20170608
